FAERS Safety Report 17872557 (Version 3)
Quarter: 2021Q1

REPORT INFORMATION
  Report Type: Spontaneous
  Country: DE (occurrence: DE)
  Receive Date: 20200608
  Receipt Date: 20210205
  Transmission Date: 20210419
  Serious: Yes (Life-Threatening, Hospitalization)
  Sender: FDA-Public Use
  Company Number: DE-MYLANLABS-2020M1054855

PATIENT
  Age: 56 Year
  Sex: Male
  Weight: 100 kg

DRUGS (9)
  1. SACUBITRIL W/VALSARTAN [Interacting]
     Active Substance: SACUBITRIL\VALSARTAN
     Indication: PRODUCT USED FOR UNKNOWN INDICATION
     Dosage: UNK, QD (24.3|25.7 MILLIGRAM (1?0?2?0) DAILY)
     Route: 048
  2. LERCANIDIPINE                      /01366402/ [Interacting]
     Active Substance: LERCANIDIPINE HYDROCHLORIDE
     Indication: PRODUCT USED FOR UNKNOWN INDICATION
     Dosage: 10 MILLIGRAM, QD (10 MG, 1?0?0?0, TABLETTEN )
     Route: 048
  3. BISOPROLOL [Concomitant]
     Active Substance: BISOPROLOL
     Indication: PRODUCT USED FOR UNKNOWN INDICATION
     Dosage: 2.5 MILLIGRAM (2.5 MG, 1?0?0?0, TABLETTEN)
     Route: 048
  4. ATORVASTATIN [Concomitant]
     Active Substance: ATORVASTATIN
     Indication: PRODUCT USED FOR UNKNOWN INDICATION
     Dosage: 40 MILLIGRAM (40 MG, 0?0?1?0, TABLETTEN)
     Route: 048
  5. TORASEMIDE [Suspect]
     Active Substance: TORSEMIDE
     Indication: PRODUCT USED FOR UNKNOWN INDICATION
     Dosage: 10 MILLIGRAM, QD (10 MILLIGRAM (10 MG, 1?0?0?0, TABLETTEN))
     Route: 048
  6. SPIRONOLACTON [Interacting]
     Active Substance: SPIRONOLACTONE
     Indication: PRODUCT USED FOR UNKNOWN INDICATION
     Dosage: 25 MILLIGRAM, QD (25 MG, 1?0?0?0, TABLETTEN )
     Route: 048
  7. INDAPAMID [Interacting]
     Active Substance: INDAPAMIDE
     Indication: PRODUCT USED FOR UNKNOWN INDICATION
     Dosage: 2.5 MILLIGRAM, QD ((1?0?0?0)
     Route: 048
  8. ACETYLSALICYLIC ACID [Concomitant]
     Active Substance: ASPIRIN
     Indication: PRODUCT USED FOR UNKNOWN INDICATION
     Dosage: 100 MILLIGRAM (100 MG, 0?1?0?0, TABLETTEN)
     Route: 048
  9. ALLOPURINOL. [Concomitant]
     Active Substance: ALLOPURINOL
     Indication: PRODUCT USED FOR UNKNOWN INDICATION
     Dosage: 300 MILLIGRAM (300 MG, 0?0?1?0, TABLETTEN )
     Route: 048

REACTIONS (8)
  - Product monitoring error [Unknown]
  - Drug interaction [Unknown]
  - General physical health deterioration [Unknown]
  - Dyspnoea [Unknown]
  - Productive cough [Unknown]
  - Electrolyte imbalance [Unknown]
  - Cough [Unknown]
  - Dyspnoea exertional [Unknown]
